FAERS Safety Report 6436907-3 (Version None)
Quarter: 2009Q4

REPORT INFORMATION
  Report Type: 
  Country: None (occurrence: None)
  Receive Date: 20091109
  Receipt Date: 20091026
  Transmission Date: 20100525
  Serious: Yes (Other)
  Sender: FDA-Public Use
  Company Number: MC200900392

PATIENT

DRUGS (4)
  1. CLEVIPREX [Suspect]
     Indication: PROCEDURAL HYPERTENSION
     Dosage: MAX DOSE, INTRAVENOUS
     Route: 042
     Dates: start: 20091024, end: 20091001
  2. PARALYZING AGENT [Concomitant]
  3. CARDENE [Concomitant]
  4. NITROGLYCERIN [Concomitant]

REACTIONS (2)
  - HYPOTENSION [None]
  - RESPIRATORY DISTRESS [None]
